FAERS Safety Report 6038013-9 (Version None)
Quarter: 2009Q1

REPORT INFORMATION
  Report Type: 
  Country: None (occurrence: None)
  Receive Date: 20090114
  Receipt Date: 20090114
  Transmission Date: 20090719
  Serious: Yes (Hospitalization)
  Sender: FDA-Public Use
  Company Number: None

PATIENT
  Sex: Male
  Weight: 87.5442 kg

DRUGS (11)
  1. BEVACIZUMAB (GENETECH) - STUDY AGENT [Suspect]
     Indication: NON-SMALL CELL LUNG CANCER
     Dosage: 10 MG/KG - IV Q2WEEKS 1 TREATMENT
     Route: 042
     Dates: start: 20090107
  2. GEMCITABINE [Suspect]
     Dosage: 200 MG/M2 1 TREATMENT
     Dates: start: 20090107
  3. PACLITAXEL [Suspect]
     Dosage: 80MG/M2 1 TREATMENT
     Dates: start: 20090107
  4. ASPIRIN [Concomitant]
  5. COMBIVANT [Concomitant]
  6. LIPITOR [Concomitant]
  7. ZEMBETA [Concomitant]
  8. ZYRTEC [Concomitant]
  9. ZOFRAN [Concomitant]
  10. DEXAMETHASONE [Concomitant]
  11. BENADRYL [Concomitant]

REACTIONS (5)
  - CONSTIPATION [None]
  - DEHYDRATION [None]
  - NAUSEA [None]
  - OBSTRUCTION [None]
  - VOMITING [None]
